FAERS Safety Report 6442089-4 (Version None)
Quarter: 2009Q4

REPORT INFORMATION
  Report Type: 
  Country: None (occurrence: None)
  Receive Date: 20091116
  Receipt Date: 20091103
  Transmission Date: 20100525
  Serious: Yes (Hospitalization, Other)
  Sender: FDA-Public Use
  Company Number: PHEH2008US05590

PATIENT
  Sex: Male

DRUGS (12)
  1. ZOMETA [Suspect]
     Dosage: MONTHLY
     Route: 042
     Dates: start: 20040101
  2. DEXAMETHASONE [Concomitant]
  3. HORMONES NOS [Concomitant]
  4. PERCOCET [Concomitant]
  5. VITAMIN D [Concomitant]
  6. PAXIL [Concomitant]
  7. CASODEX [Concomitant]
  8. LUPRON [Concomitant]
  9. ELIGARD [Concomitant]
  10. ZOLADEX [Concomitant]
  11. HYDROCORTISONE [Concomitant]
  12. CLINDAMYCIN [Concomitant]
     Dosage: 300 MG

REACTIONS (22)
  - ANHEDONIA [None]
  - ANXIETY [None]
  - BONE DISORDER [None]
  - CHEST PAIN [None]
  - DEBRIDEMENT [None]
  - DENTAL CARIES [None]
  - DENTURE WEARER [None]
  - DEPRESSION [None]
  - DIVERTICULUM INTESTINAL [None]
  - EDENTULOUS [None]
  - GENERAL PHYSICAL HEALTH DETERIORATION [None]
  - GOITRE [None]
  - GYNAECOMASTIA [None]
  - INTERVERTEBRAL DISC SPACE NARROWING [None]
  - JAW DISORDER [None]
  - MALIGNANT NEOPLASM PROGRESSION [None]
  - MUSCULOSKELETAL CHEST PAIN [None]
  - OSTEONECROSIS [None]
  - PAIN [None]
  - PAIN IN JAW [None]
  - SPINAL DEFORMITY [None]
  - SWELLING [None]
